FAERS Safety Report 7034007-5 (Version None)
Quarter: 2010Q4

REPORT INFORMATION
  Report Type: 
  Country: None (occurrence: None)
  Receive Date: 20101007
  Receipt Date: 20101001
  Transmission Date: 20110411
  Serious: Yes (Death)
  Sender: FDA-Public Use
  Company Number: PHEH2008US11828

PATIENT
  Sex: Male

DRUGS (1)
  1. EXJADE [Suspect]
     Dosage: 500 MG/ 20 MG PER KG
     Route: 048
     Dates: start: 20070627, end: 20080626

REACTIONS (7)
  - APLASIA PURE RED CELL [None]
  - BACTERAEMIA [None]
  - CARDIAC DEATH [None]
  - CHRONIC LYMPHOCYTIC LEUKAEMIA [None]
  - RENAL FAILURE ACUTE [None]
  - RESPIRATORY FAILURE [None]
  - SEPTIC SHOCK [None]
